FAERS Safety Report 10167659 (Version 2)
Quarter: 2014Q2

REPORT INFORMATION
  Report Type: Spontaneous
  Country: JP (occurrence: JP)
  Receive Date: 20140512
  Receipt Date: 20140512
  Transmission Date: 20141212
  Serious: Yes (Death)
  Sender: FDA-Public Use
  Company Number: JP-MALLINCKRODT-T201401129

PATIENT
  Age: 44 Year
  Sex: Male
  Weight: 68.1 kg

DRUGS (15)
  1. METHADONE [Suspect]
     Indication: CANCER PAIN
     Dosage: 5 MG (15 MG DAILY DOSE)
     Route: 048
     Dates: start: 20131230, end: 20140105
  2. METHADONE [Suspect]
     Dosage: 10 MG (20 MG DAILY DOSE)
     Route: 048
     Dates: start: 20140106, end: 20140126
  3. METHADONE [Suspect]
     Dosage: 15 MG (30 MG DAILY DOSE)
     Route: 048
     Dates: start: 20140127, end: 20140312
  4. OXINORM [Concomitant]
     Indication: PRODUCT USED FOR UNKNOWN INDICATION
     Dosage: 5 MG, PRN
     Route: 048
     Dates: start: 20131229
  5. MAGMITT [Concomitant]
     Indication: PRODUCT USED FOR UNKNOWN INDICATION
     Dosage: 1500 MG, UNK
     Route: 048
     Dates: end: 20140304
  6. PURSENNID [Concomitant]
     Indication: PRODUCT USED FOR UNKNOWN INDICATION
     Dosage: 24 MG, UNK
     Route: 048
     Dates: end: 20140304
  7. ATARAX-P [Concomitant]
     Indication: PRODUCT USED FOR UNKNOWN INDICATION
     Dosage: 50 MG, UNK
     Route: 048
     Dates: end: 20140304
  8. THERADIA [Concomitant]
     Indication: PRODUCT USED FOR UNKNOWN INDICATION
     Dosage: UNK
     Route: 065
     Dates: end: 20140304
  9. TARIVID [Concomitant]
     Indication: PRODUCT USED FOR UNKNOWN INDICATION
     Dosage: UNK
     Route: 047
     Dates: end: 20140304
  10. TERRA CORTRIL [Concomitant]
     Indication: PRODUCT USED FOR UNKNOWN INDICATION
     Dosage: UNK
     Route: 065
     Dates: end: 20140304
  11. VOLTAREN [Concomitant]
     Dosage: 25 MG, UNK
     Route: 054
     Dates: start: 20140228, end: 20140312
  12. MIDAZOLAM [Concomitant]
     Dosage: 10 MG, UNK
     Route: 051
     Dates: start: 20140226, end: 20140314
  13. RINDERON [Concomitant]
     Dosage: 4 MG, UNK
     Route: 051
     Dates: start: 20140304, end: 20140313
  14. ROPION [Concomitant]
     Dosage: 100 MG, UNK
     Route: 051
     Dates: start: 20140304, end: 20140313
  15. OMEPRAZOLE [Concomitant]
     Dosage: 20 MG, UNK
     Route: 051
     Dates: start: 20140304, end: 20140313

REACTIONS (6)
  - Nasal sinus cancer [Fatal]
  - Somnolence [Recovered/Resolved]
  - Hypercalcaemia [Recovered/Resolved]
  - Eating disorder [Not Recovered/Not Resolved]
  - Dehydration [Not Recovered/Not Resolved]
  - Delirium [Not Recovered/Not Resolved]
